FAERS Safety Report 6895061-4 (Version None)
Quarter: 2010Q3

REPORT INFORMATION
  Report Type: 
  Country: None (occurrence: None)
  Receive Date: 20100730
  Receipt Date: 20100730
  Transmission Date: 20110219
  Serious: Yes (Hospitalization)
  Sender: FDA-Public Use
  Company Number: None

PATIENT
  Age: 65 Year
  Sex: Male
  Weight: 94 kg

DRUGS (2)
  1. CIPROFLOXACIN [Suspect]
     Indication: ARTHRITIS INFECTIVE
     Dosage: 500 MG BID PO
     Route: 048
     Dates: start: 20100105
  2. CEFEPIME [Suspect]
     Indication: ARTHRITIS INFECTIVE
     Dosage: 1 GM  IV
     Route: 042
     Dates: start: 20100105, end: 20100215

REACTIONS (2)
  - CLOSTRIDIUM DIFFICILE COLITIS [None]
  - DRUG INEFFECTIVE [None]
